FAERS Safety Report 6146194-1 (Version None)
Quarter: 2009Q2

REPORT INFORMATION
  Report Type: 
  Country: None (occurrence: None)
  Receive Date: 20090407
  Receipt Date: 20090401
  Transmission Date: 20091009
  Serious: No
  Sender: FDA-Public Use
  Company Number: US-B.I. PHARMACEUTICALS,INC./RIDGEFIELD-2009-BP-04186BP

PATIENT
  Sex: Male

DRUGS (8)
  1. SPIRIVA [Suspect]
     Indication: CHRONIC OBSTRUCTIVE PULMONARY DISEASE
     Dosage: 18MCG
     Route: 055
     Dates: start: 20090201
  2. MULTIVITAMIN [Concomitant]
     Indication: MACULAR DEGENERATION
     Route: 048
     Dates: start: 20000101
  3. MUCINEX [Concomitant]
     Indication: CHRONIC OBSTRUCTIVE PULMONARY DISEASE
     Dosage: 1200MG
     Dates: start: 20090315
  4. ADVAIR HFA [Concomitant]
     Indication: CHRONIC OBSTRUCTIVE PULMONARY DISEASE
     Dosage: 2PUF
     Dates: start: 20020101
  5. COUMADIN [Concomitant]
     Indication: ANTICOAGULANT THERAPY
  6. SINGULAIR [Concomitant]
     Indication: HYPERSENSITIVITY
     Dosage: 10MG
     Dates: start: 20000101
  7. PREDNISONE [Concomitant]
     Indication: CHRONIC OBSTRUCTIVE PULMONARY DISEASE
     Dosage: 10MG
     Dates: start: 20080101
  8. FLOMAX [Concomitant]
     Indication: MICTURITION DISORDER
     Dosage: .4MG

REACTIONS (1)
  - VISUAL IMPAIRMENT [None]
